FAERS Safety Report 4829343-4 (Version None)
Quarter: 2005Q4

REPORT INFORMATION
  Report Type: 
  Country: None (occurrence: None)
  Receive Date: 20051116
  Receipt Date: 20051027
  Transmission Date: 20060501
  Serious: Yes (Death)
  Sender: FDA-Public Use
  Company Number: 2005UW16226

PATIENT
  Age: 90 Year
  Sex: Male

DRUGS (8)
  1. SEROQUEL [Suspect]
     Indication: AGITATION
     Route: 048
     Dates: start: 20050324
  2. SEROQUEL [Suspect]
     Indication: AGGRESSION
     Route: 048
     Dates: start: 20050324
  3. SEROQUEL [Suspect]
     Indication: ANXIETY
     Route: 048
     Dates: start: 20050324
  4. SEROQUEL [Suspect]
     Route: 048
     Dates: end: 20050406
  5. SEROQUEL [Suspect]
     Route: 048
     Dates: end: 20050406
  6. SEROQUEL [Suspect]
     Route: 048
     Dates: end: 20050406
  7. FENTANYL [Concomitant]
     Indication: PAIN
     Route: 062
     Dates: start: 20050329, end: 20050406
  8. PAXIL [Concomitant]
     Indication: DEPRESSION
     Route: 048
     Dates: start: 20050324, end: 20050406

REACTIONS (2)
  - DRUG INEFFECTIVE [None]
  - RESPIRATORY ARREST [None]
